FAERS Safety Report 9491398 (Version 1)
Quarter: 2013Q3

REPORT INFORMATION
  Report Type: Spontaneous
  Country: GB (occurrence: None)
  Receive Date: 20130827
  Receipt Date: 20130827
  Transmission Date: 20140515
  Serious: Yes (Death)
  Sender: FDA-Public Use
  Company Number: 2013P108617

PATIENT
  Age: 40 Year
  Sex: Male

DRUGS (3)
  1. RISPERIDONE [Suspect]
     Indication: SCHIZOPHRENIA, PARANOID TYPE
  2. PAROXETINE [Suspect]
     Indication: SCHIZOPHRENIA, PARANOID TYPE
  3. ALCOHOL (CON.) [Concomitant]

REACTIONS (2)
  - Serotonin syndrome [None]
  - Drug interaction [None]
